FAERS Safety Report 12173677 (Version 1)
Quarter: 2016Q1

REPORT INFORMATION
  Report Type: Spontaneous
  Country: US (occurrence: None)
  Receive Date: 20160311
  Receipt Date: 20160311
  Transmission Date: 20160526
  Serious: Yes (Hospitalization)
  Sender: FDA-Public Use
  Company Number: None

PATIENT
  Age: 59 Year
  Sex: Female

DRUGS (10)
  1. ONDANSETRON [Concomitant]
     Active Substance: ONDANSETRON
  2. ZOLPIDEM [Concomitant]
     Active Substance: ZOLPIDEM\ZOLPIDEM TARTRATE
  3. GENERLAC [Concomitant]
     Active Substance: LACTULOSE
  4. OXYCODONE [Concomitant]
     Active Substance: OXYCODONE
  5. HYDROMORPHON [Concomitant]
     Active Substance: HYDROMORPHONE
  6. PROCHLORPER [Concomitant]
  7. FASLODEX [Concomitant]
     Active Substance: FULVESTRANT
  8. XGEVA [Concomitant]
     Active Substance: DENOSUMAB
  9. CARISOPRODOL. [Concomitant]
     Active Substance: CARISOPRODOL
  10. IBRANCE [Suspect]
     Active Substance: PALBOCICLIB
     Indication: BREAST CANCER
     Route: 048
     Dates: start: 20160210

REACTIONS (1)
  - Mastectomy [None]

NARRATIVE: CASE EVENT DATE: 20160310
